FAERS Safety Report 18621402 (Version 1)
Quarter: 2020Q4

REPORT INFORMATION
  Report Type: Spontaneous
  Country: GB (occurrence: GB)
  Receive Date: 20201216
  Receipt Date: 20201216
  Transmission Date: 20210114
  Serious: Yes (Death)
  Sender: FDA-Public Use
  Company Number: GB-INSMED, INC.-E2B_00000364

PATIENT
  Age: 14 Year
  Sex: Male

DRUGS (9)
  1. COLISTIN [Suspect]
     Active Substance: COLISTIN
     Indication: BACTERIAL INFECTION
     Dosage: UNK
  2. AMBISOME [Suspect]
     Active Substance: AMPHOTERICIN B
     Indication: FUNGAL SKIN INFECTION
     Dosage: 7 MG/KG, UNK
  3. AMBISOME [Suspect]
     Active Substance: AMPHOTERICIN B
     Dosage: 3 MG/KG, UNK
  4. ZAVICEFTA [Suspect]
     Active Substance: AVIBACTAM SODIUM\CEFTAZIDIME
     Indication: PRODUCT USED FOR UNKNOWN INDICATION
     Dosage: UNK
  5. CRESEMBA [Suspect]
     Active Substance: ISAVUCONAZONIUM SULFATE
     Indication: MUCORMYCOSIS
     Dosage: UNK
  6. CRESEMBA [Suspect]
     Active Substance: ISAVUCONAZONIUM SULFATE
     Indication: FUNGAL INFECTION
  7. AMIKACIN SULFATE. [Suspect]
     Active Substance: AMIKACIN SULFATE
     Indication: BACTERIAL INFECTION
     Dosage: UNK
  8. TIGECYCLINE. [Suspect]
     Active Substance: TIGECYCLINE
     Indication: BACTERIAL INFECTION
     Dosage: UNK
  9. CRESEMBA [Suspect]
     Active Substance: ISAVUCONAZONIUM SULFATE
     Indication: ASPERGILLUS INFECTION

REACTIONS (4)
  - Product administered to patient of inappropriate age [Unknown]
  - Drug ineffective [Recovering/Resolving]
  - Death [Fatal]
  - Off label use [Unknown]
